FAERS Safety Report 4874866-5 (Version None)
Quarter: 2006Q1

REPORT INFORMATION
  Report Type: 
  Country: None (occurrence: None)
  Receive Date: 20060104
  Receipt Date: 20051229
  Transmission Date: 20060701
  Serious: Yes (Other)
  Sender: FDA-Public Use
  Company Number: GBWYE269029DEC05

PATIENT
  Age: 15 Year
  Sex: Female

DRUGS (2)
  1. MINOCIN [Suspect]
     Indication: ACNE
     Dosage: 100 MG 1X PER 1 DAY ORAL
     Route: 048
     Dates: start: 20031001, end: 20051101
  2. AMITRIPTYLINE (AMITRIPTYLINE) [Concomitant]

REACTIONS (2)
  - DEPRESSION [None]
  - HEADACHE [None]
